FAERS Safety Report 4923511-9 (Version None)
Quarter: 2006Q1

REPORT INFORMATION
  Report Type: 
  Country: None (occurrence: None)
  Receive Date: 20060227
  Receipt Date: 20060215
  Transmission Date: 20060701
  Serious: Yes (Other)
  Sender: FDA-Public Use
  Company Number: US-AVENTIS-200611617US

PATIENT
  Sex: Female
  Weight: 88 kg

DRUGS (3)
  1. ARAVA [Suspect]
     Indication: RHEUMATOID ARTHRITIS
     Route: 048
     Dates: start: 20040101, end: 20051224
  2. TYLENOL ARTHRITIS EXTENDED RELIEF [Concomitant]
     Dosage: DOSE: UNKNOWN
     Dates: start: 20051129, end: 20060121
  3. REMICADE [Concomitant]
     Dates: start: 20030101, end: 20051201

REACTIONS (3)
  - ABORTION SPONTANEOUS [None]
  - BENIGN HYDATIDIFORM MOLE [None]
  - DRUG EXPOSURE DURING PREGNANCY [None]
